FAERS Safety Report 13742445 (Version 2)
Quarter: 2017Q3

REPORT INFORMATION
  Report Type: Spontaneous
  Country: HU (occurrence: HU)
  Receive Date: 20170711
  Receipt Date: 20170718
  Transmission Date: 20171127
  Serious: Yes (Hospitalization)
  Sender: FDA-Public Use
  Company Number: HU-ORION CORPORATION ORION PHARMA-17_00002466

PATIENT
  Sex: Female

DRUGS (9)
  1. PRADAXA [Concomitant]
     Active Substance: DABIGATRAN ETEXILATE MESYLATE
     Route: 065
  2. VENTOLIN [Concomitant]
     Active Substance: ALBUTEROL SULFATE
     Route: 055
  3. TREXAN [Suspect]
     Active Substance: METHOTREXATE SODIUM
     Indication: PSORIATIC ARTHROPATHY
     Route: 065
     Dates: start: 201604
  4. ADEXOR [Concomitant]
     Route: 065
  5. GLUCOBAY [Concomitant]
     Active Substance: ACARBOSE
     Route: 065
  6. DIAPREL [Concomitant]
     Active Substance: GLICLAZIDE
     Route: 065
  7. TREXAN [Suspect]
     Active Substance: METHOTREXATE SODIUM
     Route: 065
     Dates: start: 20170310, end: 20170312
  8. FOSTER [Concomitant]
     Active Substance: BECLOMETHASONE\FORMOTEROL
     Route: 055
  9. PORTIRON [Concomitant]
     Route: 065

REACTIONS (9)
  - Inappropriate schedule of drug administration [Recovered/Resolved]
  - Lymphopenia [Recovered/Resolved]
  - Toxic skin eruption [Recovered/Resolved]
  - Dizziness [Unknown]
  - Leukopenia [Recovered/Resolved]
  - Neutropenia [Recovered/Resolved]
  - Thrombocytopenia [Recovered/Resolved]
  - Nausea [Unknown]
  - Vomiting [Unknown]

NARRATIVE: CASE EVENT DATE: 201604
